FAERS Safety Report 16410460 (Version 5)
Quarter: 2019Q3

REPORT INFORMATION
  Report Type: Spontaneous
  Country: US (occurrence: US)
  Receive Date: 20190610
  Receipt Date: 20190729
  Transmission Date: 20191004
  Serious: No
  Sender: FDA-Public Use
  Company Number: US-PFIZER INC-2019242956

PATIENT
  Age: 39 Year
  Sex: Male
  Weight: 104 kg

DRUGS (4)
  1. LYRICA [Suspect]
     Active Substance: PREGABALIN
     Dosage: UNK
     Dates: start: 201611
  2. LYRICA [Suspect]
     Active Substance: PREGABALIN
     Dosage: 50 MG, 2X/DAY (ONCE IN THE MORNING AND ONCE AT NIGHT)
     Route: 048
  3. LYRICA [Suspect]
     Active Substance: PREGABALIN
     Dosage: 150 MG, DAILY (TWO 50MG, CAPSULES IN THE MORNING AND ONE 50MG CAPSULE AT NIGHT)
     Route: 048
  4. LYRICA [Suspect]
     Active Substance: PREGABALIN
     Indication: NERVE INJURY
     Dosage: 50 MG, 3X/DAY
     Dates: start: 201611

REACTIONS (5)
  - Loss of personal independence in daily activities [Unknown]
  - Dyspnoea [Unknown]
  - Memory impairment [Unknown]
  - Sinusitis [Unknown]
  - Hypoaesthesia [Unknown]
